FAERS Safety Report 4303745-7 (Version None)
Quarter: 2004Q1

REPORT INFORMATION
  Report Type: 
  Country: None (occurrence: None)
  Receive Date: 20040225
  Receipt Date: 20040217
  Transmission Date: 20041129
  Serious: Yes (Death)
  Sender: FDA-Public Use
  Company Number: PHBS2004DE02354

PATIENT
  Age: 16 Year
  Sex: Female

DRUGS (3)
  1. TEGRETOL [Suspect]
     Route: 048
  2. CAPTIN [Suspect]
     Route: 048
  3. ALCOHOL [Suspect]
     Route: 048

REACTIONS (5)
  - BRAIN OEDEMA [None]
  - COMPLETED SUICIDE [None]
  - INTENTIONAL OVERDOSE [None]
  - SKIN INJURY [None]
  - URINARY RETENTION [None]
